FAERS Safety Report 4970890-2 (Version None)
Quarter: 2006Q2

REPORT INFORMATION
  Report Type: 
  Country: None (occurrence: None)
  Receive Date: 20060411
  Receipt Date: 20060411
  Transmission Date: 20061013
  Serious: Yes (Other)
  Sender: FDA-Public Use
  Company Number: None

PATIENT
  Age: 69 Year
  Sex: Male
  Weight: 101.6 kg

DRUGS (1)
  1. ALPHAGAN [Suspect]
     Indication: GLAUCOMA
     Dosage: 0S BID, 1 OS BID, OPHTHALM
     Route: 047
     Dates: start: 20051024, end: 20060329

REACTIONS (1)
  - CONJUNCTIVAL OEDEMA [None]
